FAERS Safety Report 21066065 (Version 1)
Quarter: 2022Q3

REPORT INFORMATION
  Report Type: Spontaneous
  Country: US (occurrence: US)
  Receive Date: 20220711
  Receipt Date: 20220711
  Transmission Date: 20221027
  Serious: Yes (Other)
  Sender: FDA-Public Use
  Company Number: US-PFIZER INC-202200939208

PATIENT
  Age: 72 Year
  Sex: Female
  Weight: 58.97 kg

DRUGS (2)
  1. PAXLOVID [Suspect]
     Active Substance: NIRMATRELVIR\RITONAVIR
     Indication: COVID-19 treatment
     Dosage: UNK
     Dates: start: 20220706
  2. ATORVASTATIN [Concomitant]
     Active Substance: ATORVASTATIN
     Dosage: UNK

REACTIONS (4)
  - Ventricular tachycardia [Unknown]
  - Cardiac flutter [Unknown]
  - Oropharyngeal pain [Unknown]
  - Feeling abnormal [Unknown]
